FAERS Safety Report 8965264 (Version 1)
Quarter: 2012Q4

REPORT INFORMATION
  Report Type: 
  Country: CH (occurrence: CH)
  Receive Date: 20121213
  Receipt Date: 20121213
  Transmission Date: 20130627
  Serious: Yes (Death, Other)
  Sender: FDA-Public Use
  Company Number: PHHY2012CH114644

PATIENT
  Age: 71 Year
  Sex: Female
  Weight: 80 kg

DRUGS (11)
  1. AMOXICILLIN\CLAVULANATE POTASSIUM [Suspect]
     Dosage: 2.2 g, daily
     Route: 042
     Dates: start: 20121127, end: 20121127
  2. CIPROXINE [Concomitant]
     Indication: STAPHYLOCOCCAL INFECTION
     Dosage: 750 mg, BID
     Route: 048
     Dates: end: 20121127
  3. ANTRA [Concomitant]
     Dosage: 20 mg, QD
     Route: 048
  4. SYMBICORT [Concomitant]
     Dosage: 1 DF, UNK
     Route: 055
  5. STILNOX [Concomitant]
     Dosage: 10 mg, QD
     Route: 048
  6. SINQUAN [Concomitant]
     Dosage: 25 mg, QD
     Route: 048
  7. ASPIRIN [Concomitant]
     Dosage: 100 mg, QD
     Route: 048
  8. DAFALGAN [Concomitant]
     Route: 048
  9. MINALGIN [Concomitant]
     Dosage: 1 g, TID
     Route: 048
     Dates: start: 20121127, end: 20121127
  10. OXYNORM [Concomitant]
     Dosage: 5 mg, UNK
     Route: 048
     Dates: start: 20121127
  11. CLEXANE [Concomitant]
     Dosage: 40 mg, QD
     Route: 058

REACTIONS (17)
  - Hypoxic-ischaemic encephalopathy [Fatal]
  - Paraesthesia [Fatal]
  - Loss of consciousness [Fatal]
  - Mydriasis [Fatal]
  - Unresponsive to stimuli [Fatal]
  - Bradypnoea [Fatal]
  - Coma [Fatal]
  - Hypertension [Unknown]
  - Myocardial ischaemia [Unknown]
  - Anaphylactic shock [Unknown]
  - Type I hypersensitivity [Recovered/Resolved]
  - Circulatory collapse [Recovered/Resolved]
  - Hypotension [Recovered/Resolved]
  - Feeling hot [Unknown]
  - Blood pH decreased [None]
  - PCO2 increased [None]
  - Blood lactic acid increased [None]
